FAERS Safety Report 7428952-6 (Version None)
Quarter: 2011Q2

REPORT INFORMATION
  Report Type: 
  Country: None (occurrence: None)
  Receive Date: 20110421
  Receipt Date: 20110413
  Transmission Date: 20111010
  Serious: Yes (Life-Threatening, Hospitalization)
  Sender: FDA-Public Use
  Company Number: US-BAXTER-2011BH010957

PATIENT
  Age: 40 Year
  Sex: Female
  Weight: 106 kg

DRUGS (9)
  1. GAMMAGARD LIQUID [Suspect]
     Indication: MYASTHENIA GRAVIS
     Route: 042
     Dates: start: 20101215, end: 20110311
  2. GAMMAGARD LIQUID [Suspect]
     Route: 042
     Dates: start: 20101215, end: 20110311
  3. KLONOPIN [Concomitant]
     Indication: SLEEP DISORDER
     Route: 048
     Dates: start: 20090101
  4. GAMMAGARD LIQUID [Suspect]
     Route: 042
     Dates: start: 20101215, end: 20110311
  5. GAMMAGARD LIQUID [Suspect]
     Indication: OFF LABEL USE
     Route: 042
     Dates: start: 20101215, end: 20110311
  6. SINGULAIR [Concomitant]
     Indication: MULTIPLE ALLERGIES
     Route: 048
     Dates: start: 20080101
  7. GAMMAGARD LIQUID [Suspect]
     Route: 042
     Dates: start: 20101215, end: 20110311
  8. GAMMAGARD LIQUID [Suspect]
     Route: 042
     Dates: start: 20101215, end: 20110311
  9. CYMBALTA [Concomitant]
     Indication: AFFECTIVE DISORDER
     Route: 048
     Dates: start: 20110101

REACTIONS (2)
  - PULMONARY EMBOLISM [None]
  - VIRAL INFECTION [None]
